FAERS Safety Report 19031186 (Version 1)
Quarter: 2021Q1

REPORT INFORMATION
  Report Type: Spontaneous
  Country: US (occurrence: US)
  Receive Date: 20210319
  Receipt Date: 20210319
  Transmission Date: 20210420
  Serious: Yes (Hospitalization)
  Sender: FDA-Public Use
  Company Number: None

PATIENT
  Age: 59 Year
  Sex: Female

DRUGS (4)
  1. ADVAIR; ALBUTEROL; AMANTADINE; ASPIRIN; BACLOFEN; XCOPAXONEX; CYMBALTA [Concomitant]
  2. AVONEX [Suspect]
     Active Substance: INTERFERON BETA-1A
     Indication: MULTIPLE SCLEROSIS
     Dosage: ?          OTHER FREQUENCY:SEE B5;?
     Route: 030
  3. FLAXSEED OIL; FLONASE; LAMICTAL; LASIX; LIDOCAINE; LIPITOR; LOPRESSOR; [Concomitant]
  4. LYRICA; MULTIVIT; POTASS; PROTONIX; TRIAMCIN CRE?OIN; VIT D; XANAX XR [Concomitant]

REACTIONS (1)
  - Hip surgery [None]

NARRATIVE: CASE EVENT DATE: 20210315
